FAERS Safety Report 15265407 (Version 1)
Quarter: 2018Q3

REPORT INFORMATION
  Report Type: Spontaneous
  Country: CH (occurrence: CH)
  Receive Date: 20180810
  Receipt Date: 20180810
  Transmission Date: 20181010
  Serious: Yes (Death)
  Sender: FDA-Public Use
  Company Number: CH-JNJFOC-20180809796

PATIENT
  Age: 48 Year
  Sex: Male

DRUGS (1)
  1. DARATUMUMAB [Suspect]
     Active Substance: DARATUMUMAB
     Indication: ANGIOCENTRIC LYMPHOMA
     Route: 042

REACTIONS (7)
  - Thrombocytopenia [Unknown]
  - Off label use [Unknown]
  - Death [Fatal]
  - Acute kidney injury [Unknown]
  - Product use in unapproved indication [Unknown]
  - Hepatic enzyme increased [Unknown]
  - Pyrexia [Unknown]
